FAERS Safety Report 7213020-9 (Version None)
Quarter: 2011Q1

REPORT INFORMATION
  Report Type: 
  Country: None (occurrence: None)
  Receive Date: 20110106
  Receipt Date: 20101227
  Transmission Date: 20110831
  Serious: Yes (Hospitalization)
  Sender: FDA-Public Use
  Company Number: B0663435A

PATIENT
  Age: 70 Year
  Sex: Female

DRUGS (2)
  1. ACIROVEC [Concomitant]
     Dates: start: 20100628, end: 20100628
  2. VALTREX [Suspect]
     Indication: HERPES ZOSTER
     Dosage: 3000MG PER DAY
     Route: 048
     Dates: start: 20100623, end: 20100626

REACTIONS (4)
  - DIZZINESS [None]
  - ENCEPHALOPATHY [None]
  - RENAL FAILURE ACUTE [None]
  - RASH [None]
